FAERS Safety Report 8183857-0 (Version None)
Quarter: 2012Q1

REPORT INFORMATION
  Report Type: 
  Country: None (occurrence: None)
  Receive Date: 20120305
  Receipt Date: 20120223
  Transmission Date: 20120608
  Serious: No
  Sender: FDA-Public Use
  Company Number: US-B.I. PHARMACEUTICALS,INC./RIDGEFIELD-2012-BP-03916BP

PATIENT
  Sex: Female

DRUGS (7)
  1. PRADAXA [Suspect]
     Dosage: 300 MG
  2. RYTHMOL [Concomitant]
     Dosage: 650 MG
  3. CRESTOR [Concomitant]
     Dosage: 5 MG
  4. OMEPRAZOLE [Concomitant]
     Dosage: 20 MG
  5. VERAPAMIL [Concomitant]
     Dosage: 360 MG
  6. LOSARTAN POTASSIUM [Concomitant]
     Dosage: 100 MG
  7. KEPPRA [Concomitant]
     Dosage: 500 MG

REACTIONS (1)
  - DRUG SCREEN POSITIVE [None]
